FAERS Safety Report 20474591 (Version 1)
Quarter: 2022Q1

REPORT INFORMATION
  Report Type: Spontaneous
  Country: PL (occurrence: PL)
  Receive Date: 20220215
  Receipt Date: 20220215
  Transmission Date: 20220423
  Serious: Yes (Other)
  Sender: FDA-Public Use
  Company Number: PL-ORPHANEU-2020003705

PATIENT

DRUGS (16)
  1. DACTINOMYCIN [Suspect]
     Active Substance: DACTINOMYCIN
     Indication: Alveolar rhabdomyosarcoma
     Dosage: 3 MILLIEQUIVALENT PER SQUARE METRE
     Route: 065
  2. DACTINOMYCIN [Suspect]
     Active Substance: DACTINOMYCIN
     Dosage: 3 MILLIGRAM/SQ. METER
     Route: 065
  3. IFOSFAMIDE [Suspect]
     Active Substance: IFOSFAMIDE
     Indication: Alveolar rhabdomyosarcoma
     Dosage: 54000 MILLIGRAM/SQ. METER
     Route: 065
  4. DOXORUBICIN [Suspect]
     Active Substance: DOXORUBICIN
     Indication: Alveolar rhabdomyosarcoma
     Dosage: 160 MILLIGRAM/SQ. METER
     Route: 065
  5. DOXORUBICIN [Suspect]
     Active Substance: DOXORUBICIN
     Dosage: 160 MILLIGRAM
     Route: 065
  6. VINCRISTINE [Suspect]
     Active Substance: VINCRISTINE
     Indication: Alveolar rhabdomyosarcoma
     Dosage: 16.5 MILLIGRAM/SQ. METER
     Route: 065
  7. CYCLOPHOSPHAMIDE [Suspect]
     Active Substance: CYCLOPHOSPHAMIDE
     Indication: Alveolar rhabdomyosarcoma
     Dosage: 1000 MILLIGRAM/SQ. METER
     Route: 065
  8. TROFOSFAMIDE [Suspect]
     Active Substance: TROFOSFAMIDE
     Indication: Alveolar rhabdomyosarcoma
     Dosage: 12000 MILLIGRAM/SQ. METER
  9. IDARUBICIN [Suspect]
     Active Substance: IDARUBICIN
     Indication: Alveolar rhabdomyosarcoma
     Dosage: 80 MILLIGRAM/SQ. METER
     Route: 065
  10. TOPOTECAN [Suspect]
     Active Substance: TOPOTECAN HYDROCHLORIDE
     Indication: Alveolar rhabdomyosarcoma
     Dosage: 28 MILLIGRAM/SQ. METER
  11. IRINOTECAN [Suspect]
     Active Substance: IRINOTECAN
     Indication: Alveolar rhabdomyosarcoma
     Dosage: 65 MILLIGRAM/SQ. METER
     Route: 065
  12. ETOPOSIDE [Suspect]
     Active Substance: ETOPOSIDE
     Indication: Alveolar rhabdomyosarcoma
     Dosage: 3600 MILLIGRAM/SQ. METER
     Route: 042
  13. ETOPOSIDE [Suspect]
     Active Substance: ETOPOSIDE
     Indication: Alveolar rhabdomyosarcoma
     Dosage: 2000 MILLIGRAM/SQ. METER
     Route: 048
  14. CARBOPLATIN [Suspect]
     Active Substance: CARBOPLATIN
     Indication: Alveolar rhabdomyosarcoma
     Dosage: 6600 MILLIGRAM/SQ. METER
  15. CYTARABINE [Suspect]
     Active Substance: CYTARABINE
     Indication: Alveolar rhabdomyosarcoma
     Dosage: UNK
     Route: 065
  16. FLUDARABINE [Suspect]
     Active Substance: FLUDARABINE PHOSPHATE
     Indication: Alveolar rhabdomyosarcoma
     Route: 065

REACTIONS (15)
  - Myelodysplastic syndrome [Not Recovered/Not Resolved]
  - Acute myeloid leukaemia [Not Recovered/Not Resolved]
  - Rhabdomyosarcoma recurrent [Not Recovered/Not Resolved]
  - Refractory anaemia with an excess of blasts [Unknown]
  - Toxicity to various agents [Unknown]
  - Rhabdomyosarcoma recurrent [Unknown]
  - Neoplasm progression [Unknown]
  - Acute myeloid leukaemia [Not Recovered/Not Resolved]
  - Hyperleukocytosis [Unknown]
  - Chromosome analysis abnormal [Unknown]
  - Hepatosplenomegaly [Unknown]
  - Anaemia [Unknown]
  - Thrombocytopenia [Unknown]
  - Pneumonia fungal [Unknown]
  - Product use in unapproved indication [Recovered/Resolved]

NARRATIVE: CASE EVENT DATE: 20090101
